FAERS Safety Report 11583199 (Version 5)
Quarter: 2015Q4

REPORT INFORMATION
  Report Type: Spontaneous
  Country: US (occurrence: US)
  Receive Date: 20151001
  Receipt Date: 20151028
  Transmission Date: 20160304
  Serious: Yes (Other)
  Sender: FDA-Public Use
  Company Number: US-DRREDDYS-USA/USA/15/0052959

PATIENT
  Sex: Male

DRUGS (4)
  1. HABITROL [Suspect]
     Active Substance: NICOTINE
     Indication: SMOKING CESSATION THERAPY
     Route: 062
     Dates: start: 201509
  2. XANAX [Concomitant]
     Active Substance: ALPRAZOLAM
     Indication: ANXIETY
     Route: 065
  3. HABITROL [Suspect]
     Active Substance: NICOTINE
     Route: 062
  4. HABITROL [Suspect]
     Active Substance: NICOTINE
     Route: 062

REACTIONS (6)
  - Treatment noncompliance [Unknown]
  - Application site bruise [Unknown]
  - Wrong technique in product usage process [Unknown]
  - Drug ineffective [Unknown]
  - Product adhesion issue [Unknown]
  - Myocardial infarction [Unknown]
